FAERS Safety Report 11259245 (Version 1)
Quarter: 2015Q3

REPORT INFORMATION
  Report Type: Spontaneous
  Country: US (occurrence: None)
  Receive Date: 20150709
  Receipt Date: 20150709
  Transmission Date: 20151125
  Serious: Yes (Hospitalization)
  Sender: FDA-Public Use
  Company Number: None

PATIENT
  Age: 22 Year
  Sex: Female
  Weight: 96.6 kg

DRUGS (1)
  1. SORAFENIB [Suspect]
     Active Substance: SORAFENIB
     Indication: SARCOMA
     Route: 048

REACTIONS (7)
  - Acute kidney injury [None]
  - Pancytopenia [None]
  - Tubulointerstitial nephritis [None]
  - Febrile neutropenia [None]
  - Cellulitis [None]
  - Seroma [None]
  - Disease progression [None]

NARRATIVE: CASE EVENT DATE: 20150702
